FAERS Safety Report 9010520 (Version 1)
Quarter: 2013Q1

REPORT INFORMATION
  Report Type: Spontaneous
  Country: US (occurrence: US)
  Receive Date: 20130109
  Receipt Date: 20130109
  Transmission Date: 20140127
  Serious: Yes (Death)
  Sender: FDA-Public Use
  Company Number: US-PFIZER INC-2013004612

PATIENT
  Age: 55 Year
  Sex: Female

DRUGS (6)
  1. MORPHINE SULFATE [Suspect]
     Dosage: UNK
     Route: 048
  2. ACETAMINOPHEN / HYDROCODONE [Suspect]
     Dosage: UNK
  3. DIPHENHYDRAMINE [Suspect]
     Dosage: UNK
  4. AMITRIPTYLINE [Suspect]
     Dosage: UNK
  5. CITALOPRAM [Suspect]
     Dosage: UNK
  6. HYDROMORPHONE [Suspect]
     Dosage: UNK

REACTIONS (1)
  - Drug abuse [Fatal]
